FAERS Safety Report 4612232-8 (Version None)
Quarter: 2005Q1

REPORT INFORMATION
  Report Type: 
  Country: None (occurrence: None)
  Receive Date: 20050308
  Receipt Date: 20041119
  Transmission Date: 20050727
  Serious: Yes (Other)
  Sender: FDA-Public Use
  Company Number: 2004UW23954

PATIENT
  Age: 69 Year
  Sex: Female
  Weight: 60.32 kg

DRUGS (3)
  1. CRESTOR [Suspect]
     Indication: BLOOD CHOLESTEROL INCREASED
     Dosage: 10 MG PO
     Route: 048
  2. CRESTOR [Suspect]
     Indication: BLOOD CHOLESTEROL INCREASED
     Dosage: 5 MG PO
     Route: 048
  3. ZETIA [Concomitant]

REACTIONS (3)
  - FATIGUE [None]
  - FEELING ABNORMAL [None]
  - MUSCULAR WEAKNESS [None]
